FAERS Safety Report 12592154 (Version 1)
Quarter: 2016Q3

REPORT INFORMATION
  Report Type: Spontaneous
  Country: US (occurrence: None)
  Receive Date: 20160725
  Receipt Date: 20160725
  Transmission Date: 20161109
  Serious: Yes (Death, Hospitalization)
  Sender: FDA-Public Use
  Company Number: None

PATIENT
  Age: 55 Year
  Sex: Male
  Weight: 88.6 kg

DRUGS (3)
  1. TAXOL [Suspect]
     Active Substance: PACLITAXEL
     Dosage: PACLITAXEL (TAXOL)?TOTAL FOR COURSE 2 (CONSOLIDATION) CONSISTED OF DAY 1 AND DAY 22 DOSING OF 426MG EACH DAY, A TOTAL OF 852MG
     Dates: end: 20160615
  2. CARBOPLATIN. [Suspect]
     Active Substance: CARBOPLATIN
     Dosage: CARBOPLATIN ?TOTAL FOR COURSE 2 (CONSOLIDATION) OF DAY 1 AND DAY 22 DOSING OF 784 MG EACH DAY, A TOTAL OF 1568MG
     Dates: end: 20160615
  3. NEULASTA [Concomitant]
     Active Substance: PEGFILGRASTIM

REACTIONS (4)
  - Blood pressure immeasurable [None]
  - Pulse absent [None]
  - Respiratory arrest [None]
  - Haemoptysis [None]

NARRATIVE: CASE EVENT DATE: 20160617
